FAERS Safety Report 6387844-4 (Version None)
Quarter: 2009Q4

REPORT INFORMATION
  Report Type: 
  Country: None (occurrence: None)
  Receive Date: 20091005
  Receipt Date: 20090922
  Transmission Date: 20100525
  Serious: Yes (Hospitalization, Other)
  Sender: FDA-Public Use
  Company Number: US-PFIZER INC-2009272545

PATIENT
  Age: 75 Year
  Sex: Male
  Weight: 65.8 kg

DRUGS (3)
  1. GABAPENTIN [Suspect]
     Indication: ANXIETY
     Dosage: 300 MG, 3X/DAY
     Route: 048
  2. TRAZODONE [Concomitant]
     Indication: SLEEP DISORDER
     Dosage: 25 MG, AT NIGHTTIME AS NEEDED TO SLEEP
     Route: 048
  3. LIDOCAINE [Concomitant]
     Indication: MOUTH ULCERATION
     Dosage: 5 ML, 4X/DAY
     Route: 048

REACTIONS (1)
  - CHOREA [None]
